FAERS Safety Report 4466043-7 (Version None)
Quarter: 2004Q3

REPORT INFORMATION
  Report Type: 
  Country: None (occurrence: None)
  Receive Date: 20040930
  Receipt Date: 20040920
  Transmission Date: 20050211
  Serious: Yes (Other)
  Sender: FDA-Public Use
  Company Number: STA-AE-04-MTX-435

PATIENT
  Age: 19 Year
  Sex: Female

DRUGS (5)
  1. METHOTREXATE [Suspect]
  2. ENBREL [Suspect]
     Indication: JUVENILE ARTHRITIS
     Dosage: 25 MG 2X PER 1 WK, SC
     Route: 058
     Dates: start: 20030501, end: 20030901
  3. ENBREL [Suspect]
     Dosage: 25 MG 2X PER 1 WK, SC
     Route: 058
     Dates: start: 20000301, end: 20020101
  4. PREDNISOLONE [Suspect]
  5. REMICADE [Suspect]

REACTIONS (3)
  - HALLUCINATION, AUDITORY [None]
  - PSYCHOTIC DISORDER [None]
  - SOCIAL AVOIDANT BEHAVIOUR [None]
